FAERS Safety Report 9279261 (Version 2)
Quarter: 2013Q2

REPORT INFORMATION
  Report Type: Report from Study
  Country: DE (occurrence: DE)
  Receive Date: 20130508
  Receipt Date: 20130524
  Transmission Date: 20140414
  Serious: Yes (Hospitalization)
  Sender: FDA-Public Use
  Company Number: DE-BAXTER-2013BAX016319

PATIENT
  Age: 42 Year
  Sex: Female
  Weight: 63 kg

DRUGS (8)
  1. ENDOXAN 1G [Suspect]
     Indication: BREAST CANCER
     Route: 042
     Dates: start: 20130408
  2. PERTUZUMAB [Suspect]
     Indication: BREAST CANCER
     Route: 065
     Dates: start: 20121219
  3. PERTUZUMAB [Suspect]
     Route: 065
     Dates: start: 20130408
  4. TRASTUZUMAB [Suspect]
     Indication: BREAST CANCER
     Route: 042
     Dates: start: 20121219
  5. TRASTUZUMAB [Suspect]
     Route: 042
     Dates: start: 20130408
  6. PACLITAXEL ALBUMIN [Suspect]
     Indication: BREAST CANCER
     Route: 042
     Dates: start: 20121219
  7. PACLITAXEL ALBUMIN [Suspect]
     Route: 042
     Dates: start: 20130308
  8. EPIRUBICIN [Suspect]
     Indication: BREAST CANCER
     Route: 042
     Dates: start: 20130408

REACTIONS (1)
  - Sinusitis [Recovered/Resolved]
